FAERS Safety Report 16217334 (Version 12)
Quarter: 2020Q2

REPORT INFORMATION
  Report Type: Spontaneous
  Country: US (occurrence: US)
  Receive Date: 20190419
  Receipt Date: 20200513
  Transmission Date: 20200713
  Serious: Yes (Other)
  Sender: FDA-Public Use
  Company Number: US-PFIZER INC-2019158246

PATIENT
  Age: 79 Year
  Sex: Female
  Weight: 103.42 kg

DRUGS (6)
  1. RAPAMUNE [Suspect]
     Active Substance: SIROLIMUS
     Dosage: 0.5 MG, 1X/DAY (4 DAYS A WEEK, TUESDAY, THURSDAY, SATURDAY, SUNDAY)
     Route: 048
  2. RAPAMUNE [Suspect]
     Active Substance: SIROLIMUS
     Dosage: 0.5 MG, 1X/DAY (0.5 MG TAKE 1 TABLET EVERY MON - FRI)
     Route: 048
  3. RAPAMUNE [Suspect]
     Active Substance: SIROLIMUS
     Dosage: 1 MG, 1X/DAY (3 DAYS A WEEK, MONDAY, WEDNESDAY, FRIDAY)
     Route: 048
  4. RAPAMUNE [Suspect]
     Active Substance: SIROLIMUS
     Indication: KIDNEY TRANSPLANT REJECTION
     Dosage: 1 MG, 2X/DAY
     Route: 048
     Dates: start: 201612
  5. RAPAMUNE [Suspect]
     Active Substance: SIROLIMUS
     Indication: PROPHYLAXIS AGAINST TRANSPLANT REJECTION
     Dosage: 1 MG, 1X/DAY
     Route: 048
  6. RAPAMUNE [Suspect]
     Active Substance: SIROLIMUS
     Dosage: 1 MG, 1X/DAY (1 MG TAKE 1 TABLET EVERY SAT + SUN)
     Route: 048

REACTIONS (8)
  - Fluid retention [Recovered/Resolved]
  - Drug level increased [Unknown]
  - Tendon injury [Recovering/Resolving]
  - Rib fracture [Unknown]
  - Ankle fracture [Not Recovered/Not Resolved]
  - Swelling [Unknown]
  - Arthritis [Unknown]
  - Fall [Unknown]

NARRATIVE: CASE EVENT DATE: 201811
